FAERS Safety Report 9777920 (Version 1)
Quarter: 2013Q4

REPORT INFORMATION
  Report Type: Spontaneous
  Country: US (occurrence: US)
  Receive Date: 20131223
  Receipt Date: 20131223
  Transmission Date: 20140711
  Serious: No
  Sender: FDA-Public Use
  Company Number: US-BIOGENIDEC-2013BI122876

PATIENT
  Sex: Female

DRUGS (3)
  1. TYSABRI [Suspect]
     Indication: MULTIPLE SCLEROSIS
     Route: 042
     Dates: start: 20071210
  2. AMOXICILLIN [Concomitant]
     Indication: INFECTION
  3. CIPRO [Concomitant]
     Indication: INFECTION

REACTIONS (2)
  - Central nervous system lesion [Not Recovered/Not Resolved]
  - Tremor [Not Recovered/Not Resolved]
